FAERS Safety Report 13527219 (Version 6)
Quarter: 2020Q3

REPORT INFORMATION
  Report Type: Report from Study
  Country: JP (occurrence: JP)
  Receive Date: 20170509
  Receipt Date: 20170627
  Transmission Date: 20201105
  Serious: Yes (Hospitalization)
  Sender: FDA-Public Use
  Company Number: JP-JNJFOC-20170501090

PATIENT
  Age: 51 Year
  Sex: Female
  Weight: 48 kg

DRUGS (17)
  1. REBAMIPIDE [Concomitant]
     Active Substance: REBAMIPIDE
     Indication: GASTRITIS PROPHYLAXIS
     Route: 048
     Dates: start: 20170215
  2. SODIUM GUALENATE HYDRATE [Concomitant]
     Active Substance: SODIUM GUALENATE MONOHYDRATE
     Indication: DYSGEUSIA
     Route: 065
     Dates: start: 20170315
  3. ET?743 [Suspect]
     Active Substance: TRABECTEDIN
     Indication: OVARIAN CANCER
     Dosage: 1.29 MG/BODY (3 HOURS INFUSION)
     Route: 042
     Dates: start: 20160725, end: 20170413
  4. METHYLCOBALAMIN. [Concomitant]
     Active Substance: METHYLCOBALAMIN
     Indication: PERIPHERAL SENSORY NEUROPATHY
     Route: 048
     Dates: start: 20170418
  5. FUNGIZONE [Concomitant]
     Active Substance: AMPHOTERICIN B
     Indication: DYSGEUSIA
     Route: 065
     Dates: start: 20170322
  6. DOXORUBICIN HYDROCHLORIDE. [Suspect]
     Active Substance: DOXORUBICIN HYDROCHLORIDE
     Route: 042
  7. POLPRAZOL [Concomitant]
     Active Substance: OMEPRAZOLE
     Indication: DYSGEUSIA
     Route: 048
     Dates: start: 20170215
  8. GLYCERIN. [Concomitant]
     Active Substance: GLYCERIN
     Indication: DYSGEUSIA
     Route: 065
     Dates: start: 20170322
  9. SENNOSIDE [Concomitant]
     Active Substance: SENNOSIDES
     Indication: CONSTIPATION
     Route: 048
     Dates: start: 20160729
  10. TAKEPRON [Concomitant]
     Active Substance: LANSOPRAZOLE
     Indication: DYSGEUSIA
     Route: 048
     Dates: start: 20170315
  11. TETRAMIDE [Concomitant]
     Active Substance: MIANSERIN
     Indication: INSOMNIA
     Route: 048
     Dates: start: 20160729
  12. ET?743 [Suspect]
     Active Substance: TRABECTEDIN
     Route: 042
  13. DOXORUBICIN HYDROCHLORIDE. [Suspect]
     Active Substance: DOXORUBICIN HYDROCHLORIDE
     Indication: OVARIAN CANCER
     Dosage: 43.11 MG/BODY (90 MIN INFUSION)
     Route: 042
     Dates: start: 20160725, end: 20170413
  14. MAGNESIUM OXIDE. [Concomitant]
     Active Substance: MAGNESIUM OXIDE
     Indication: CONSTIPATION
     Route: 048
     Dates: start: 20160727
  15. ADEFURONIC [Concomitant]
     Active Substance: DICLOFENAC SODIUM
     Indication: MYALGIA
     Route: 048
     Dates: start: 20170215
  16. ELIQUIS [Concomitant]
     Active Substance: APIXABAN
     Indication: EMBOLISM
     Route: 048
     Dates: start: 20160901
  17. PRIMPERAN [Concomitant]
     Active Substance: METOCLOPRAMIDE HYDROCHLORIDE
     Indication: NAUSEA
     Route: 048
     Dates: start: 20170211

REACTIONS (1)
  - Arthritis bacterial [Recovering/Resolving]

NARRATIVE: CASE EVENT DATE: 20170501
